FAERS Safety Report 18531783 (Version 1)
Quarter: 2020Q4

REPORT INFORMATION
  Report Type: Report from Study
  Country: None (occurrence: CA)
  Receive Date: 20201123
  Receipt Date: 20201123
  Transmission Date: 20210114
  Serious: Yes (Hospitalization)
  Sender: FDA-Public Use
  Company Number: CA-ABBVIE-20K-028-3628918-00

PATIENT
  Age: 65 Year
  Sex: Female
  Weight: 60.84 kg

DRUGS (6)
  1. DUODOPA [Suspect]
     Active Substance: CARBIDOPA\LEVODOPA
     Dosage: DUODOPA-LEVODOPA20MG/ML,CARBIDOPAMONOHYDRATE5MG/ML
     Route: 050
     Dates: start: 20170501, end: 20201025
  2. SINEMET [Concomitant]
     Active Substance: CARBIDOPA\LEVODOPA
     Indication: PRODUCT USED FOR UNKNOWN INDICATION
  3. DUODOPA [Suspect]
     Active Substance: CARBIDOPA\LEVODOPA
     Dosage: DUODOPA-LEVODOPA20MG/ML,CARBIDOPAMONOHYDRATE5MG/ML
     Route: 050
     Dates: start: 20201027, end: 202010
  4. DUODOPA [Suspect]
     Active Substance: CARBIDOPA\LEVODOPA
     Indication: PARKINSON^S DISEASE
     Dosage: MD: 9ML, CR: 2.8ML/HR, ED:2.0ML
     Route: 050
     Dates: start: 20170227, end: 2017
  5. LEVODOPA [Concomitant]
     Active Substance: LEVODOPA
     Indication: GENERAL SYMPTOM
     Dosage: 1/2
     Route: 048
  6. DUODOPA [Suspect]
     Active Substance: CARBIDOPA\LEVODOPA
     Dosage: MORNING DOSE: 9ML, CONTINUOUS RATE: 2.8ML/HR, EXTRA DOSE: 2.0 ML
     Route: 050
     Dates: start: 202010

REACTIONS (7)
  - Parkinson^s disease [Unknown]
  - Panic attack [Recovered/Resolved]
  - Device issue [Recovered/Resolved]
  - Anxiety [Recovered/Resolved]
  - Muscle rigidity [Not Recovered/Not Resolved]
  - Unevaluable event [Unknown]
  - Dyskinesia [Not Recovered/Not Resolved]

NARRATIVE: CASE EVENT DATE: 202009
